FAERS Safety Report 23955511 (Version 1)
Quarter: 2024Q2

REPORT INFORMATION
  Report Type: Spontaneous
  Country: CA (occurrence: CA)
  Receive Date: 20240610
  Receipt Date: 20240610
  Transmission Date: 20240716
  Serious: Yes (Hospitalization, Other)
  Sender: FDA-Public Use
  Company Number: CA-CHEPLA-2024007058

PATIENT
  Age: 66 Year
  Sex: Female
  Weight: 78.9 kg

DRUGS (18)
  1. HYDROXYUREA [Suspect]
     Active Substance: HYDROXYUREA
     Indication: Chronic myeloid leukaemia
     Dates: start: 20220811, end: 20221011
  2. AMLODIPINE [Concomitant]
     Active Substance: AMLODIPINE BESYLATE
     Dates: start: 2017, end: 20221011
  3. ATORVASTATIN [Concomitant]
     Active Substance: ATORVASTATIN
     Dates: start: 2017, end: 20221011
  4. FLUTICASONE FUROATE [Concomitant]
     Active Substance: FLUTICASONE FUROATE
     Dates: start: 2017, end: 20230214
  5. PERINDOPRIL [Concomitant]
     Active Substance: PERINDOPRIL
     Dates: start: 2017, end: 20240328
  6. VILANTEROL [Concomitant]
     Active Substance: VILANTEROL
     Dates: start: 2019, end: 202309
  7. DEXLANSOPRAZOLE [Concomitant]
     Active Substance: DEXLANSOPRAZOLE
     Indication: Prophylaxis
     Dates: start: 2022
  8. VENTOLIN [Concomitant]
     Active Substance: ALBUTEROL SULFATE
     Dates: start: 202208, end: 20221223
  9. ZOPICLONE [Concomitant]
     Active Substance: ZOPICLONE
     Dates: start: 20220811, end: 20221228
  10. ALLOPURINOL [Concomitant]
     Active Substance: ALLOPURINOL
     Indication: Prophylaxis
     Dates: start: 202209
  11. ACETAMINOPHEN [Concomitant]
     Active Substance: ACETAMINOPHEN
     Dates: start: 202209
  12. CODEINE [Concomitant]
     Active Substance: CODEINE
     Dates: start: 202209
  13. CAFFEINE [Concomitant]
     Active Substance: CAFFEINE
     Dates: start: 202209
  14. ONDANSETRON [Concomitant]
     Active Substance: ONDANSETRON
     Dates: start: 20221009, end: 20221009
  15. SODIUM CHLORIDE [Concomitant]
     Active Substance: SODIUM CHLORIDE
     Dates: start: 20221009, end: 20221009
  16. MORPHINE [Concomitant]
     Active Substance: MORPHINE
     Dates: start: 20221011, end: 20221011
  17. DIMENHYDRINATE [Concomitant]
     Active Substance: DIMENHYDRINATE
     Dates: start: 20230727, end: 202402
  18. RAMIPRIL [Concomitant]
     Active Substance: RAMIPRIL

REACTIONS (20)
  - Vomiting [Recovered/Resolved]
  - Basal cell carcinoma [Unknown]
  - Bowen^s disease [Unknown]
  - Leukocytosis [Not Recovered/Not Resolved]
  - Insomnia [Unknown]
  - Anxiety [Unknown]
  - Fatigue [Unknown]
  - Splenomegaly [Unknown]
  - Diverticulum [Unknown]
  - Dyspnoea [Unknown]
  - Nausea [Unknown]
  - Arthralgia [Unknown]
  - Abdominal pain [Recovered/Resolved]
  - Rash [Unknown]
  - Dizziness [Recovered/Resolved]
  - Visual impairment [Unknown]
  - Fall [Unknown]
  - Chills [Unknown]
  - Night sweats [Unknown]
  - Hypertransaminasaemia [Recovered/Resolved]

NARRATIVE: CASE EVENT DATE: 20220801
